FAERS Safety Report 9644301 (Version 1)
Quarter: 2013Q4

REPORT INFORMATION
  Report Type: Spontaneous
  Country: US (occurrence: US)
  Receive Date: 20131025
  Receipt Date: 20131025
  Transmission Date: 20140711
  Serious: No
  Sender: FDA-Public Use
  Company Number: US-FOUGERA-2013FO000113

PATIENT
  Sex: Female

DRUGS (1)
  1. BETAMETHASONE VALERATE [Suspect]
     Indication: RASH
     Route: 061

REACTIONS (1)
  - Application site pain [Unknown]
